FAERS Safety Report 9458904 (Version 1)
Quarter: 2013Q3

REPORT INFORMATION
  Report Type: Spontaneous
  Country: ES (occurrence: ES)
  Receive Date: 20130814
  Receipt Date: 20130814
  Transmission Date: 20140515
  Serious: Yes (Death)
  Sender: FDA-Public Use
  Company Number: ES-GLAXOSMITHKLINE-B0914728A

PATIENT
  Age: 74 Year
  Sex: Male

DRUGS (6)
  1. VOTRIENT [Suspect]
     Indication: RENAL CELL CARCINOMA
     Dosage: 800MG PER DAY
     Route: 048
     Dates: start: 201304, end: 20130618
  2. PARACETAMOL [Concomitant]
  3. BUSCOPAN [Concomitant]
     Indication: ABDOMINAL PAIN
  4. NOLOTIL [Concomitant]
     Indication: ABDOMINAL PAIN
  5. SINTROM [Concomitant]
  6. HEPARIN [Concomitant]

REACTIONS (11)
  - Death [Fatal]
  - Depression [Unknown]
  - Fatigue [Unknown]
  - Asthenia [Unknown]
  - Myalgia [Unknown]
  - Anxiety [Unknown]
  - Dehydration [Unknown]
  - Malnutrition [Unknown]
  - Diarrhoea [Unknown]
  - Vomiting [Unknown]
  - Lymphadenopathy [Unknown]
